FAERS Safety Report 6505153-7 (Version None)
Quarter: 2009Q4

REPORT INFORMATION
  Report Type: 
  Country: None (occurrence: None)
  Receive Date: 20091218
  Receipt Date: 20091209
  Transmission Date: 20100525
  Serious: Yes (Hospitalization)
  Sender: FDA-Public Use
  Company Number: PHHY2009AU54098

PATIENT
  Sex: Female

DRUGS (2)
  1. ACLASTA [Suspect]
     Indication: OSTEOPOROSIS
     Dosage: 5 MG/100 ML
     Dates: start: 20091208
  2. ACLASTA [Suspect]
     Dosage: 5 MG/100 ML
     Dates: start: 20091208

REACTIONS (1)
  - ACCIDENTAL OVERDOSE [None]
